FAERS Safety Report 15629008 (Version 1)
Quarter: 2018Q4

REPORT INFORMATION
  Report Type: Report from Study
  Country: IT (occurrence: IT)
  Receive Date: 20181116
  Receipt Date: 20181116
  Transmission Date: 20190205
  Serious: Yes (Hospitalization)
  Sender: FDA-Public Use
  Company Number: IT-TEVA-2018-IT-975798

PATIENT
  Age: 43 Year
  Sex: Male

DRUGS (1)
  1. QUETIAPINA TEVA ITALIA 300 MG, COMPRESSE A RILASCIO PROLUNGATO [Suspect]
     Active Substance: QUETIAPINE FUMARATE
     Indication: INTENTIONAL SELF-INJURY
     Route: 048
     Dates: start: 20180725, end: 20180725

REACTIONS (2)
  - Sopor [Recovering/Resolving]
  - Substance abuse [Recovering/Resolving]

NARRATIVE: CASE EVENT DATE: 20180725
